FAERS Safety Report 8133839-X (Version None)
Quarter: 2012Q1

REPORT INFORMATION
  Report Type: 
  Country: None (occurrence: None)
  Receive Date: 20120213
  Receipt Date: 20120209
  Transmission Date: 20120608
  Serious: Yes (Life-Threatening)
  Sender: FDA-Public Use
  Company Number: GB-ASTRAZENECA-2012SE08780

PATIENT
  Age: 47 Year
  Sex: Female

DRUGS (1)
  1. LISINOPRIL [Suspect]
     Indication: HYPERTENSION
     Route: 048
     Dates: start: 20120109, end: 20120111

REACTIONS (5)
  - CHEST DISCOMFORT [None]
  - HYPOAESTHESIA [None]
  - DYSPNOEA [None]
  - PARAESTHESIA [None]
  - HEADACHE [None]
